FAERS Safety Report 9785769 (Version 1)
Quarter: 2013Q4

REPORT INFORMATION
  Report Type: Spontaneous
  Country: FR (occurrence: FR)
  Receive Date: 20131227
  Receipt Date: 20131227
  Transmission Date: 20140711
  Serious: Yes (Hospitalization)
  Sender: FDA-Public Use
  Company Number: FR-SA-2013SA133942

PATIENT
  Age: 65 Year
  Sex: Female

DRUGS (12)
  1. TAVANIC [Suspect]
     Indication: OSTEITIS
     Route: 065
     Dates: start: 20131127, end: 20131207
  2. RIFAMPICINE [Suspect]
     Indication: OSTEITIS
     Route: 065
     Dates: start: 20131127, end: 20131207
  3. KARDEGIC [Concomitant]
  4. CORGARD [Concomitant]
  5. COTAREG [Concomitant]
  6. KALEORID [Concomitant]
  7. TOCO [Concomitant]
  8. INIPOMP [Concomitant]
  9. BROMAZEPAM [Concomitant]
  10. ZALDIAR [Concomitant]
  11. AERIUS [Concomitant]
  12. FUNGIZONE [Concomitant]
     Indication: ORAL FUNGAL INFECTION

REACTIONS (6)
  - Night sweats [Unknown]
  - Erythrosis [Unknown]
  - Gastrointestinal disorder [Recovered/Resolved]
  - Diarrhoea [Recovered/Resolved]
  - Abdominal pain [Recovered/Resolved]
  - Decreased appetite [Recovered/Resolved]
